FAERS Safety Report 9979776 (Version 2)
Quarter: 2014Q1

REPORT INFORMATION
  Report Type: Report from Study
  Country: US (occurrence: US)
  Receive Date: 20140306
  Receipt Date: 20140306
  Transmission Date: 20141002
  Serious: No
  Sender: FDA-Public Use
  Company Number: US-ABBVIE-13P-163-1172613-00

PATIENT
  Age: 67 Year
  Sex: Male

DRUGS (6)
  1. HUMIRA [Suspect]
     Indication: COLITIS ULCERATIVE
     Dates: start: 20130918
  2. IMURAN [Suspect]
     Indication: PRODUCT USED FOR UNKNOWN INDICATION
  3. NEXIUM [Concomitant]
     Indication: GASTROOESOPHAGEAL REFLUX DISEASE
  4. ASACOL [Concomitant]
     Indication: COLITIS ULCERATIVE
  5. LEVOTHYROXINE [Concomitant]
     Indication: HYPOTHYROIDISM
  6. VITAMIN D [Concomitant]
     Indication: HYPOVITAMINOSIS

REACTIONS (2)
  - Malaise [Unknown]
  - Pneumonia [Recovering/Resolving]
